FAERS Safety Report 7441766-6 (Version None)
Quarter: 2011Q2

REPORT INFORMATION
  Report Type: 
  Country: None (occurrence: None)
  Receive Date: 20110419
  Receipt Date: 20110411
  Transmission Date: 20111010
  Serious: Yes (Other)
  Sender: FDA-Public Use
  Company Number: 2011SP016847

PATIENT
  Age: 84 Year
  Sex: Female

DRUGS (8)
  1. MIRALAX [Suspect]
     Indication: CONSTIPATION
     Dosage: TID;PO ; BID;PO ; QD;PO
     Route: 048
  2. MIRALAX [Suspect]
     Indication: CONSTIPATION
     Dosage: TID;PO ; BID;PO ; QD;PO
     Route: 048
  3. CALCIUM [Concomitant]
  4. NICIN [Concomitant]
  5. FISH OIL [Concomitant]
  6. CENTRUM SILVER [Concomitant]
  7. ACIPHEX [Concomitant]
  8. LEVOTHYROXINE SODIUM [Concomitant]

REACTIONS (2)
  - EYELID OEDEMA [None]
  - ABDOMINAL DISTENSION [None]
